FAERS Safety Report 4341367-2 (Version None)
Quarter: 2004Q2

REPORT INFORMATION
  Report Type: 
  Country: None (occurrence: None)
  Receive Date: 20040412
  Receipt Date: 20021025
  Transmission Date: 20050107
  Serious: Yes (Hospitalization)
  Sender: FDA-Public Use
  Company Number: HQ4886828OCT2002

PATIENT
  Age: 49 Year
  Sex: Male

DRUGS (10)
  1. REGLAN [Suspect]
     Indication: GASTROOESOPHAGEAL REFLUX DISEASE
     Dates: start: 19900101, end: 19960101
  2. REGLAN [Suspect]
     Dosage: 10 MG BID IV
     Route: 042
     Dates: start: 19960101, end: 20021017
  3. METHADONE HCL [Concomitant]
  4. ALPRAZOLAM [Concomitant]
  5. ATORVASTATIN CALCIUM [Concomitant]
  6. LORATADINE/PSEUDOEPHEDRINE SULFATE [Concomitant]
  7. TAMSULOSIN [Concomitant]
  8. BISACODYL [Concomitant]
  9. TOLMETIN SODIUM [Concomitant]
  10. CYCLOBENZAPRINE [Concomitant]

REACTIONS (12)
  - BLOOD PRESSURE INCREASED [None]
  - CARDIAC DISORDER [None]
  - DEPRESSION [None]
  - ERECTILE DYSFUNCTION [None]
  - FATIGUE [None]
  - HEADACHE [None]
  - HEPATITIS B [None]
  - LETHARGY [None]
  - RESPIRATORY DISORDER [None]
  - RESTLESSNESS [None]
  - SEDATION [None]
  - URINARY TRACT DISORDER [None]
